FAERS Safety Report 22040035 (Version 2)
Quarter: 2023Q4

REPORT INFORMATION
  Report Type: Spontaneous
  Country: UA (occurrence: UA)
  Receive Date: 20230227
  Receipt Date: 20231006
  Transmission Date: 20240109
  Serious: Yes (Hospitalization)
  Sender: FDA-Public Use
  Company Number: UA-BAYER-2023A023971

PATIENT
  Age: 55 Year
  Sex: Female

DRUGS (2)
  1. ULTRAVIST [Suspect]
     Active Substance: IOPROMIDE
     Indication: Scan with contrast
     Dosage: 80 ML, ONCE
     Route: 042
     Dates: start: 20230222, end: 20230222
  2. ULTRAVIST [Suspect]
     Active Substance: IOPROMIDE
     Indication: Urinary tract disorder

REACTIONS (4)
  - Tremor [None]
  - Blood pressure decreased [None]
  - Pulse abnormal [None]
  - Stupor [None]

NARRATIVE: CASE EVENT DATE: 20230222
